FAERS Safety Report 6070026-3 (Version None)
Quarter: 2009Q1

REPORT INFORMATION
  Report Type: 
  Country: None (occurrence: None)
  Receive Date: 20090209
  Receipt Date: 20090129
  Transmission Date: 20090719
  Serious: Yes (Other)
  Sender: FDA-Public Use
  Company Number: PHHY2009FR03455

PATIENT
  Sex: Male

DRUGS (2)
  1. FORADIL [Suspect]
  2. MIFLONIL [Concomitant]

REACTIONS (3)
  - CHEST PAIN [None]
  - DRUG ADMINISTRATION ERROR [None]
  - FOREIGN BODY TRAUMA [None]
